FAERS Safety Report 16601773 (Version 1)
Quarter: 2019Q3

REPORT INFORMATION
  Report Type: Spontaneous
  Country: TH (occurrence: TH)
  Receive Date: 20190719
  Receipt Date: 20190719
  Transmission Date: 20191004
  Serious: Yes (Other)
  Sender: FDA-Public Use
  Company Number: PHHY2019TH164040

PATIENT
  Age: 10 Month
  Sex: Female

DRUGS (2)
  1. POLYOPH [Suspect]
     Active Substance: GRAMICIDIN\NEOMYCIN SULFATE\POLYMYXIN B SULFATE
     Indication: CONJUNCTIVITIS
     Route: 065
  2. TOBREX [Suspect]
     Active Substance: TOBRAMYCIN
     Indication: EYE INFECTION
     Dosage: UNK
     Route: 047
     Dates: start: 20190709

REACTIONS (3)
  - Eye oedema [Recovering/Resolving]
  - Eye pain [Recovering/Resolving]
  - Eye haemorrhage [Recovered/Resolved]
